FAERS Safety Report 13157211 (Version 1)
Quarter: 2017Q1

REPORT INFORMATION
  Report Type: Spontaneous
  Country: US (occurrence: US)
  Receive Date: 20170127
  Receipt Date: 20170127
  Transmission Date: 20170428
  Serious: No
  Sender: FDA-Public Use
  Company Number: US-ASTRAZENECA-2017SE05081

PATIENT
  Sex: Female

DRUGS (1)
  1. SEROQUEL [Suspect]
     Active Substance: QUETIAPINE FUMARATE
     Route: 048

REACTIONS (7)
  - Gait disturbance [Unknown]
  - Blood pressure increased [Unknown]
  - Thyroid disorder [Unknown]
  - Somnolence [Unknown]
  - Weight increased [Unknown]
  - Insomnia [Unknown]
  - Intentional product use issue [Unknown]
